FAERS Safety Report 18730334 (Version 1)
Quarter: 2021Q1

REPORT INFORMATION
  Report Type: Spontaneous
  Country: US (occurrence: US)
  Receive Date: 20210112
  Receipt Date: 20210112
  Transmission Date: 20210419
  Serious: No
  Sender: FDA-Public Use
  Company Number: US-INTRA-CELLULAR THERAPIES, INC.-2020ICT00178

PATIENT
  Sex: Male

DRUGS (2)
  1. OTHER MEDICATIONS [Concomitant]
     Active Substance: UNSPECIFIED INGREDIENT
  2. CAPLYTA [Suspect]
     Active Substance: LUMATEPERONE
     Indication: MENTAL DISORDER
     Dosage: 42 MG, 1X/DAY
     Dates: start: 20201001, end: 202010

REACTIONS (2)
  - Priapism [Unknown]
  - Off label use [Recovered/Resolved]

NARRATIVE: CASE EVENT DATE: 202010
